FAERS Safety Report 6295468-2 (Version None)
Quarter: 2009Q3

REPORT INFORMATION
  Report Type: 
  Country: None (occurrence: None)
  Receive Date: 20090731
  Receipt Date: 20090727
  Transmission Date: 20100115
  Serious: Yes (Hospitalization)
  Sender: FDA-Public Use
  Company Number: GXKR2009DE08556

PATIENT
  Age: 79 Year
  Sex: Female

DRUGS (12)
  1. LISIHEXAL              (LISINOPRIL) TABLET, 10MG [Suspect]
     Dosage: 10 MG DAILY, ORAL
     Route: 048
  2. FUROSEMIDE          (FUROSEMIDE) UNKNOWN, [Suspect]
     Dosage: 40 MG DAILY, ORAL
     Route: 048
     Dates: start: 20081112
  3. DOMINAL       (PROTHIPENDYL HYDROCHLORIDE) [Suspect]
     Dosage: 80 MG, QD, ORAL
     Route: 048
     Dates: start: 20081107
  4. SEROQUEL [Suspect]
     Dosage: SEE IMAGE
     Route: 048
     Dates: start: 20081122, end: 20081123
  5. SEROQUEL [Suspect]
     Dosage: SEE IMAGE
     Route: 048
     Dates: start: 20081125, end: 20081126
  6. SEROQUEL [Suspect]
     Dosage: SEE IMAGE
     Route: 048
     Dates: start: 20081128, end: 20081129
  7. SEROQUEL [Suspect]
     Dosage: SEE IMAGE
     Route: 048
     Dates: start: 20081120
  8. SEROQUEL [Suspect]
     Dosage: SEE IMAGE
     Route: 048
     Dates: start: 20081121
  9. SEROQUEL [Suspect]
     Dosage: SEE IMAGE
     Route: 048
     Dates: start: 20081124
  10. SEROQUEL [Suspect]
     Dosage: SEE IMAGE
     Route: 048
     Dates: start: 20081127
  11. SEROQUEL [Suspect]
     Dosage: SEE IMAGE
     Route: 048
     Dates: start: 20081130
  12. LANITOP         (METILDIGOXIN) [Concomitant]

REACTIONS (3)
  - CIRCULATORY COLLAPSE [None]
  - FALL [None]
  - HYPOTENSION [None]
